FAERS Safety Report 9796386 (Version 1)
Quarter: 2014Q1

REPORT INFORMATION
  Report Type: Spontaneous
  Country: FR (occurrence: FR)
  Receive Date: 20140103
  Receipt Date: 20140103
  Transmission Date: 20141002
  Serious: Yes (Death, Other)
  Sender: FDA-Public Use
  Company Number: FR-ELI_LILLY_AND_COMPANY-FR201312008840

PATIENT
  Age: 66 Year
  Sex: Female

DRUGS (2)
  1. GEMZAR [Suspect]
     Indication: PRODUCT USED FOR UNKNOWN INDICATION
     Dosage: 800 MG, CYCLICAL
     Route: 042
     Dates: start: 20130204, end: 20130926
  2. AVASTIN [Suspect]
     Indication: PRODUCT USED FOR UNKNOWN INDICATION
     Dosage: 10 MG, CYCLICAL
     Route: 042
     Dates: start: 20130204, end: 20130916

REACTIONS (17)
  - Encephalopathy [Fatal]
  - Hypertension [Fatal]
  - Grand mal convulsion [Fatal]
  - Proteinuria [Fatal]
  - Thrombocytopenia [Fatal]
  - Renal impairment [Unknown]
  - Thrombotic microangiopathy [Unknown]
  - Haematuria [Unknown]
  - Nausea [Unknown]
  - Vomiting [Unknown]
  - Hypertension [Not Recovered/Not Resolved]
  - Confusional state [Unknown]
  - Headache [Unknown]
  - Gait disturbance [Unknown]
  - Fall [Unknown]
  - Aphasia [Unknown]
  - Memory impairment [Unknown]
